FAERS Safety Report 4639721-4 (Version None)
Quarter: 2005Q2

REPORT INFORMATION
  Report Type: 
  Country: None (occurrence: None)
  Receive Date: 20050328
  Receipt Date: 20041228
  Transmission Date: 20051028
  Serious: No
  Sender: FDA-Public Use
  Company Number: USA041286991

PATIENT
  Age: 8 Year
  Sex: Male
  Weight: 36 kg

DRUGS (1)
  1. STRATTERA [Suspect]
     Indication: ATTENTION DEFICIT/HYPERACTIVITY DISORDER
     Dosage: 40 MG DAY
     Dates: start: 20031101, end: 20041201

REACTIONS (7)
  - ASTHENIA [None]
  - CRYING [None]
  - EYE DISORDER [None]
  - INSOMNIA [None]
  - MOOD SWINGS [None]
  - NIGHTMARE [None]
  - WEIGHT INCREASED [None]
